FAERS Safety Report 5800935-9 (Version None)
Quarter: 2008Q3

REPORT INFORMATION
  Report Type: 
  Country: None (occurrence: None)
  Receive Date: 20080702
  Receipt Date: 20080616
  Transmission Date: 20090109
  Serious: Yes (Hospitalization)
  Sender: FDA-Public Use
  Company Number: 2008AL006954

PATIENT
  Age: 80 Year
  Sex: Female
  Weight: 55.7924 kg

DRUGS (1)
  1. DIGOXIN [Suspect]
     Dosage: DAILY PO
     Route: 048
     Dates: start: 20071201, end: 20080310

REACTIONS (7)
  - ABASIA [None]
  - ANOREXIA [None]
  - ASTHENIA [None]
  - CARDIAC FAILURE [None]
  - FALL [None]
  - GENERAL PHYSICAL HEALTH DETERIORATION [None]
  - RENAL FAILURE [None]
